FAERS Safety Report 9752727 (Version 1)
Quarter: 2013Q4

REPORT INFORMATION
  Report Type: Spontaneous
  Country: PT (occurrence: PT)
  Receive Date: 20131213
  Receipt Date: 20131213
  Transmission Date: 20140711
  Serious: Yes (Life-Threatening, Hospitalization)
  Sender: FDA-Public Use
  Company Number: PT-ROXANE LABORATORIES, INC.-2013-RO-01928RO

PATIENT
  Age: 43 Year
  Sex: Male

DRUGS (8)
  1. LITHIUM CARBONATE [Suspect]
     Indication: BIPOLAR DISORDER
  2. OLANZAPINE [Concomitant]
  3. VALPROATE [Concomitant]
  4. PROMETHAZINE [Concomitant]
  5. HALOPERIDOL [Concomitant]
  6. CYAMEMAZINE [Concomitant]
  7. TIAPRIDE [Concomitant]
  8. DIAZEPAM [Concomitant]

REACTIONS (4)
  - Toxicity to various agents [Recovered/Resolved]
  - Diabetes insipidus [Recovered/Resolved]
  - Coma [Recovered/Resolved]
  - Pneumonia [Unknown]
